FAERS Safety Report 10404504 (Version 1)
Quarter: 2014Q2

REPORT INFORMATION
  Report Type: Spontaneous
  Country: US (occurrence: None)
  Receive Date: 20140514
  Receipt Date: 20140514
  Transmission Date: 20141212
  Serious: Yes (Other)
  Sender: FDA-Public Use
  Company Number: 097119

PATIENT
  Sex: Female
  Weight: 56.6 kg

DRUGS (2)
  1. CIMZIA [Suspect]
     Indication: CROHN^S DISEASE
     Dosage: (400MG 1X/MONTH SUBCUTANEOUS)
  2. IMURAN [Concomitant]

REACTIONS (2)
  - Serum sickness [None]
  - Rectal haemorrhage [None]
